FAERS Safety Report 25600795 (Version 1)
Quarter: 2025Q3

REPORT INFORMATION
  Report Type: Spontaneous
  Country: US (occurrence: US)
  Receive Date: 20250724
  Receipt Date: 20250724
  Transmission Date: 20251020
  Serious: No
  Sender: SANOFI AVENTIS
  Company Number: US-SA-2025SA210035

PATIENT
  Age: 40 Year
  Sex: Female

DRUGS (9)
  1. REZUROCK [Suspect]
     Active Substance: BELUMOSUDIL
     Indication: Chronic graft versus host disease
     Dosage: 200 MG, QD
     Route: 048
  2. ACYCLOVIR [Concomitant]
     Active Substance: ACYCLOVIR
  3. CALCIUM\VITAMIN D [Concomitant]
     Active Substance: CALCIUM\VITAMIN D
  4. DIFLUCAN [Concomitant]
     Active Substance: FLUCONAZOLE
  5. LYRICA [Concomitant]
     Active Substance: PREGABALIN
  6. PANTOPRAZOLE SODIUM [Concomitant]
     Active Substance: PANTOPRAZOLE SODIUM
  7. PENICILLIN V POTASSIUM [Concomitant]
     Active Substance: PENICILLIN V POTASSIUM
  8. PROTONIX [Concomitant]
     Active Substance: PANTOPRAZOLE SODIUM
  9. TYLENOL EXTRA STRENGTH [Concomitant]
     Active Substance: ACETAMINOPHEN

REACTIONS (2)
  - Hepatic enzyme increased [Unknown]
  - Inappropriate schedule of product administration [Unknown]
